FAERS Safety Report 8539517-7 (Version None)
Quarter: 2012Q3

REPORT INFORMATION
  Report Type: 
  Country: None (occurrence: None)
  Receive Date: 20120726
  Receipt Date: 20120723
  Transmission Date: 20120928
  Serious: No
  Sender: FDA-Public Use
  Company Number: US-TEVA-350201USA

PATIENT
  Sex: Female
  Weight: 81.72 kg

DRUGS (4)
  1. CLONIDINE [Concomitant]
     Indication: HYPERTENSION
     Dates: start: 20110101
  2. CELEXA [Concomitant]
     Indication: DEPRESSION
     Dates: start: 19970101
  3. PLAN B ONE-STEP [Suspect]
     Indication: POST COITAL CONTRACEPTION
     Dosage: 1.5 MILLIGRAM;
     Route: 048
     Dates: start: 20120720, end: 20120720
  4. ASACOL [Concomitant]
     Indication: PRODUCT USED FOR UNKNOWN INDICATION

REACTIONS (1)
  - DYSURIA [None]
